FAERS Safety Report 22373406 (Version 1)
Quarter: 2023Q2

REPORT INFORMATION
  Report Type: Spontaneous
  Country: US (occurrence: US)
  Receive Date: 20230526
  Receipt Date: 20230526
  Transmission Date: 20230722
  Serious: Yes (Hospitalization, Other)
  Sender: FDA-Public Use
  Company Number: US-TRIS PHARMA, INC.-23US010882

PATIENT

DRUGS (4)
  1. DYANAVEL XR [Suspect]
     Active Substance: AMPHETAMINE
     Indication: Attention deficit hyperactivity disorder
     Dosage: 20 MILLIGRAM
     Route: 048
     Dates: start: 20230511, end: 20230511
  2. DYANAVEL XR [Suspect]
     Active Substance: AMPHETAMINE
     Dosage: 20 MILLIGRAM
     Route: 048
     Dates: start: 20230513, end: 20230513
  3. WELLBUTRIN [Concomitant]
     Active Substance: BUPROPION HYDROCHLORIDE
     Indication: Depression
     Dosage: UNK
     Route: 048
  4. UNSPECIFIED INGREDIENT [Concomitant]
     Active Substance: UNSPECIFIED INGREDIENT
     Indication: Product used for unknown indication
     Dosage: UNK

REACTIONS (4)
  - Suicidal ideation [Unknown]
  - Autoscopy [Unknown]
  - Dysarthria [Unknown]
  - Off label use [Unknown]

NARRATIVE: CASE EVENT DATE: 20230511
